FAERS Safety Report 6680627-7 (Version None)
Quarter: 2010Q2

REPORT INFORMATION
  Report Type: 
  Country: None (occurrence: None)
  Receive Date: 20100414
  Receipt Date: 20100405
  Transmission Date: 20101027
  Serious: No
  Sender: FDA-Public Use
  Company Number: 2009BI030065

PATIENT
  Age: 29 Year
  Sex: Female

DRUGS (1)
  1. TYSABRI [Suspect]
     Indication: MULTIPLE SCLEROSIS
     Route: 042
     Dates: start: 20090807

REACTIONS (13)
  - BALANCE DISORDER [None]
  - CENTRAL VENOUS CATHETERISATION [None]
  - DERMATITIS BULLOUS [None]
  - DIPLOPIA [None]
  - DYSKINESIA [None]
  - HEADACHE [None]
  - HYPOAESTHESIA [None]
  - LOSS OF CONTROL OF LEGS [None]
  - MULTIPLE SCLEROSIS RELAPSE [None]
  - NAUSEA [None]
  - PAIN [None]
  - RASH PRURITIC [None]
  - STRESS [None]
